FAERS Safety Report 5279124-5 (Version None)
Quarter: 2007Q1

REPORT INFORMATION
  Report Type: 
  Country: None (occurrence: None)
  Receive Date: 20070327
  Receipt Date: 20070327
  Transmission Date: 20070707
  Serious: Yes (Hospitalization)
  Sender: FDA-Public Use
  Company Number: None

PATIENT
  Age: 82 Year
  Sex: Male
  Weight: 66.6788 kg

DRUGS (10)
  1. WARFARIN SODIUM [Suspect]
     Indication: ATRIAL FIBRILLATION
     Dosage: 4 MG   DAILY   PO
     Route: 048
     Dates: start: 20051123, end: 20070218
  2. DOCUSATE NA [Concomitant]
  3. TAMSULOSIN HCL [Concomitant]
  4. INDOMETHACIN [Concomitant]
  5. ALLOPRUINOL [Concomitant]
  6. SIMVASTATIN [Concomitant]
  7. TRAZODONE HCL [Concomitant]
  8. LEVETRIACETAM [Concomitant]
  9. METOPROLOL SUCCINATE [Concomitant]
  10. LISINOPRIL AND HYDROCHLOROTHIAZIDE [Concomitant]

REACTIONS (3)
  - DRUG TOXICITY [None]
  - LOWER GASTROINTESTINAL HAEMORRHAGE [None]
  - WEIGHT DECREASED [None]
